FAERS Safety Report 7758109-0 (Version None)
Quarter: 2011Q3

REPORT INFORMATION
  Report Type: 
  Country: None (occurrence: None)
  Receive Date: 20110919
  Receipt Date: 20110913
  Transmission Date: 20111222
  Serious: No
  Sender: FDA-Public Use
  Company Number: US-BIOGENIDEC-2011BI035272

PATIENT
  Age: 50 Year
  Sex: Female

DRUGS (2)
  1. PAIN MEDICATION (NOS) [Concomitant]
     Indication: PAIN
  2. TYSABRI [Suspect]
     Indication: MULTIPLE SCLEROSIS
     Route: 042
     Dates: start: 20080610

REACTIONS (2)
  - VISUAL IMPAIRMENT [None]
  - HEADACHE [None]
